FAERS Safety Report 15868043 (Version 1)
Quarter: 2019Q1

REPORT INFORMATION
  Report Type: Spontaneous
  Country: CO (occurrence: CO)
  Receive Date: 20190125
  Receipt Date: 20190125
  Transmission Date: 20190417
  Serious: Yes (Other)
  Sender: FDA-Public Use
  Company Number: CO-BAYER-2019-017470

PATIENT
  Sex: Female

DRUGS (1)
  1. QLAIRA [Suspect]
     Active Substance: DIENOGEST\ESTRADIOL VALERATE
     Indication: OVARIAN CYST
     Dosage: 1 DF, QD
     Route: 048
     Dates: start: 20190116

REACTIONS (5)
  - Angina pectoris [Unknown]
  - Off label use [None]
  - Product use in unapproved indication [None]
  - Chest pain [Unknown]
  - Palpitations [Unknown]

NARRATIVE: CASE EVENT DATE: 201901
